FAERS Safety Report 9908790 (Version 2)
Quarter: 2014Q1

REPORT INFORMATION
  Report Type: Spontaneous
  Country: US (occurrence: US)
  Receive Date: 20140219
  Receipt Date: 20140307
  Transmission Date: 20141002
  Serious: No
  Sender: FDA-Public Use
  Company Number: US-PFIZER INC-2014047492

PATIENT
  Age: 66 Year
  Sex: Female
  Weight: 78.91 kg

DRUGS (1)
  1. PRISTIQ [Suspect]
     Indication: DEPRESSION
     Dosage: 50 MG, DAILY

REACTIONS (2)
  - Feeling abnormal [Unknown]
  - Mood swings [Unknown]
